FAERS Safety Report 14009268 (Version 1)
Quarter: 2017Q3

REPORT INFORMATION
  Report Type: Spontaneous
  Country: DK (occurrence: DK)
  Receive Date: 20170925
  Receipt Date: 20170925
  Transmission Date: 20171128
  Serious: Yes (Hospitalization)
  Sender: FDA-Public Use
  Company Number: PHHY2017DK137737

PATIENT
  Age: 53 Year
  Sex: Male

DRUGS (2)
  1. DICILLIN [Suspect]
     Active Substance: DICLOXACILLIN SODIUM
     Indication: ERYSIPELAS
     Dosage: 1 G, TID
     Route: 048
     Dates: start: 201708, end: 201708
  2. PRIMCILLIN [Suspect]
     Active Substance: PENICILLIN V POTASSIUM
     Indication: ERYSIPELAS
     Dosage: 800 MG, TID
     Route: 048
     Dates: start: 201708, end: 201708

REACTIONS (2)
  - Jaundice [Unknown]
  - Liver disorder [Not Recovered/Not Resolved]

NARRATIVE: CASE EVENT DATE: 201708
